FAERS Safety Report 23960566 (Version 1)
Quarter: 2024Q2

REPORT INFORMATION
  Report Type: Report from Study
  Country: GB (occurrence: GB)
  Receive Date: 20240611
  Receipt Date: 20240611
  Transmission Date: 20240716
  Serious: Yes (Other)
  Sender: FDA-Public Use
  Company Number: GB-SANDOZ-SDZ2024GB056613

PATIENT
  Sex: Female

DRUGS (1)
  1. HYRIMOZ [Suspect]
     Active Substance: ADALIMUMAB-ADAZ
     Indication: Colitis ulcerative
     Dosage: 40 MG, Q2W, 40MG/0.4ML, PRE-FILLED PENS PRE-FILLED DISPOSABLE INJECTION
     Route: 058
     Dates: start: 20240313

REACTIONS (1)
  - Colitis ulcerative [Not Recovered/Not Resolved]
